FAERS Safety Report 19845242 (Version 1)
Quarter: 2021Q3

REPORT INFORMATION
  Report Type: Spontaneous
  Country: CA (occurrence: CA)
  Receive Date: 20210916
  Receipt Date: 20210916
  Transmission Date: 20211014
  Serious: Yes (Other)
  Sender: FDA-Public Use
  Company Number: CA-TEVA-2021-CA-1879966

PATIENT
  Age: 61 Year
  Sex: Male

DRUGS (8)
  1. ESBRIET [Suspect]
     Active Substance: PIRFENIDONE
     Dosage: 2403 MILLIGRAM DAILY;
     Route: 048
  2. SYNTHROID [Concomitant]
     Active Substance: LEVOTHYROXINE SODIUM
  3. ESBRIET [Suspect]
     Active Substance: PIRFENIDONE
     Indication: IDIOPATHIC PULMONARY FIBROSIS
     Dosage: 801 MILLIGRAM DAILY;
     Route: 048
  4. ESBRIET [Suspect]
     Active Substance: PIRFENIDONE
     Dosage: 801 MILLIGRAM DAILY;
     Route: 042
  5. OMEPRAZOLE. [Suspect]
     Active Substance: OMEPRAZOLE
     Indication: PRODUCT USED FOR UNKNOWN INDICATION
     Route: 065
  6. ROSUVASTATIN. [Concomitant]
     Active Substance: ROSUVASTATIN
     Indication: BLOOD CHOLESTEROL
  7. ESBRIET [Suspect]
     Active Substance: PIRFENIDONE
     Dosage: 1602 MILLIGRAM DAILY;
     Route: 048
  8. ACETYLSALICYLIC ACID [Concomitant]
     Active Substance: ASPIRIN

REACTIONS (16)
  - Abdominal discomfort [Not Recovered/Not Resolved]
  - Abdominal pain [Not Recovered/Not Resolved]
  - Anal haemorrhage [Not Recovered/Not Resolved]
  - Dyspnoea [Not Recovered/Not Resolved]
  - Gastrooesophageal reflux disease [Not Recovered/Not Resolved]
  - Headache [Not Recovered/Not Resolved]
  - Seasonal allergy [Not Recovered/Not Resolved]
  - Decreased appetite [Not Recovered/Not Resolved]
  - Dizziness [Not Recovered/Not Resolved]
  - Nausea [Not Recovered/Not Resolved]
  - Diarrhoea [Not Recovered/Not Resolved]
  - Eructation [Not Recovered/Not Resolved]
  - Fatigue [Not Recovered/Not Resolved]
  - Pruritus [Not Recovered/Not Resolved]
  - Gastrointestinal disorder [Not Recovered/Not Resolved]
  - Sinusitis [Not Recovered/Not Resolved]
